FAERS Safety Report 12230920 (Version 1)
Quarter: 2016Q2

REPORT INFORMATION
  Report Type: Report from Study
  Country: US (occurrence: US)
  Receive Date: 20160401
  Receipt Date: 20160401
  Transmission Date: 20160815
  Serious: Yes (Other)
  Sender: FDA-Public Use
  Company Number: US-MDT-ADR-2016-00445

PATIENT
  Age: 74 Year
  Sex: Female

DRUGS (7)
  1. PERCOCET [Concomitant]
     Active Substance: ACETAMINOPHEN\OXYCODONE HYDROCHLORIDE
  2. DILAUDID [Suspect]
     Active Substance: HYDROMORPHONE HYDROCHLORIDE
     Dosage: 36.01 MCG/DAY
     Route: 037
     Dates: start: 20151013
  3. COMPOUNDED BACLOFEN [Suspect]
     Active Substance: BACLOFEN
     Indication: CANCER PAIN
     Dosage: 16.80 MCG/DAY
     Route: 037
     Dates: start: 20151013
  4. BUPIVACAINE. [Suspect]
     Active Substance: BUPIVACAINE
     Dosage: 0.183 MG/DAY
     Route: 037
     Dates: start: 20151230
  5. COMPOUNDED BACLOFEN [Suspect]
     Active Substance: BACLOFEN
     Indication: CANCER PAIN
     Dosage: 2.13 MCG/DAY
     Route: 037
     Dates: start: 20151230
  6. BUPIVACAINE. [Suspect]
     Active Substance: BUPIVACAINE
     Dosage: 1.440 MG/DAY
     Route: 037
     Dates: start: 20151013
  7. DILAUDID [Suspect]
     Active Substance: HYDROMORPHONE HYDROCHLORIDE
     Dosage: 4.57 MCG/DAY
     Route: 037
     Dates: start: 20151230

REACTIONS (3)
  - Adverse drug reaction [Recovered/Resolved]
  - Device issue [None]
  - Overdose [Recovered/Resolved]
